FAERS Safety Report 16211303 (Version 1)
Quarter: 2019Q2

REPORT INFORMATION
  Report Type: Spontaneous
  Country: US (occurrence: US)
  Receive Date: 20190417
  Receipt Date: 20190417
  Transmission Date: 20190711
  Serious: Yes (Other)
  Sender: FDA-Public Use
  Company Number: None

PATIENT
  Age: 49 Year
  Sex: Male
  Weight: 97.29 kg

DRUGS (3)
  1. MARINOL [Concomitant]
     Active Substance: DRONABINOL
  2. ONDANSETRON [Concomitant]
     Active Substance: ONDANSETRON
  3. CAPECITABINE. [Suspect]
     Active Substance: CAPECITABINE
     Indication: RECTAL CANCER
     Route: 048
     Dates: start: 20190321

REACTIONS (1)
  - Thrombocytopenia [None]
